FAERS Safety Report 14577984 (Version 1)
Quarter: 2018Q1

REPORT INFORMATION
  Report Type: Spontaneous
  Country: PL (occurrence: PL)
  Receive Date: 20180227
  Receipt Date: 20180227
  Transmission Date: 20180509
  Serious: Yes (Other)
  Sender: FDA-Public Use
  Company Number: PL-MYLANLABS-2018M1012746

PATIENT
  Age: 38 Year
  Sex: Male

DRUGS (2)
  1. CARBOPLATIN. [Suspect]
     Active Substance: CARBOPLATIN
     Indication: OESOPHAGEAL SQUAMOUS CELL CARCINOMA
     Dosage: 4 CYCLES; REGIMEN: CARBOPLATIN AUC2 + PACLITAXEL 50 MG/M2, EVERY 7 DAYS
     Route: 065
     Dates: start: 201507, end: 201508
  2. PACLITAXEL SANDOZ [Suspect]
     Active Substance: PACLITAXEL
     Indication: OESOPHAGEAL SQUAMOUS CELL CARCINOMA
     Dosage: 4 CYCLES; REGIMEN: CARBOPLATIN AUC2 + PACLITAXEL 50 MG/M2, EVERY 7 DAYS
     Route: 065
     Dates: start: 201507, end: 201508

REACTIONS (3)
  - Metastatic lymphoma [Unknown]
  - Skin lesion [Unknown]
  - Lymphadenopathy [Unknown]

NARRATIVE: CASE EVENT DATE: 201510
